FAERS Safety Report 6480424-1 (Version None)
Quarter: 2009Q4

REPORT INFORMATION
  Report Type: 
  Country: None (occurrence: None)
  Receive Date: 20091202
  Receipt Date: 20091202
  Transmission Date: 20100525
  Serious: Yes (Other)
  Sender: FDA-Public Use
  Company Number: 1000005272

PATIENT
  Age: 31 Year
  Sex: Male

DRUGS (4)
  1. LEXAPRO [Suspect]
     Indication: ANXIETY
     Dosage: 10 MG (10 MG,1 IN 1 D),ORAL
     Route: 048
     Dates: start: 20081001, end: 20081101
  2. LEXAPRO [Suspect]
     Indication: ANXIETY
     Dosage: 20 MG (20 MG,1 IN 1 D),ORAL ; 10 MG (10 MG,1 IN 1 D),ORAL
     Route: 048
     Dates: start: 20081101, end: 20090101
  3. LEXAPRO [Suspect]
     Indication: ANXIETY
     Dosage: 20 MG (20 MG,1 IN 1 D),ORAL ; 10 MG (10 MG,1 IN 1 D),ORAL
     Route: 048
     Dates: start: 20090101, end: 20090401
  4. ERYTHROMYCIN [Concomitant]

REACTIONS (4)
  - ARRHYTHMIA SUPRAVENTRICULAR [None]
  - HYPOAESTHESIA [None]
  - PARAESTHESIA [None]
  - SICK SINUS SYNDROME [None]
